FAERS Safety Report 13220024 (Version 2)
Quarter: 2017Q2

REPORT INFORMATION
  Report Type: Spontaneous
  Country: US (occurrence: US)
  Receive Date: 20170210
  Receipt Date: 20170421
  Transmission Date: 20170830
  Serious: Yes (Hospitalization, Other)
  Sender: FDA-Public Use
  Company Number: US-AMGEN-USASP2017019615

PATIENT
  Age: 78 Year
  Sex: Male

DRUGS (2)
  1. KYPROLIS [Suspect]
     Active Substance: CARFILZOMIB
     Indication: PLASMA CELL MYELOMA
     Dosage: UNK
     Route: 065
  2. KYPROLIS [Suspect]
     Active Substance: CARFILZOMIB
     Dosage: 70 MG PER WEEK, UNK
     Route: 065

REACTIONS (9)
  - Diarrhoea [Unknown]
  - Hypoxia [Unknown]
  - Pyrexia [Unknown]
  - Off label use [Unknown]
  - Platelet count decreased [Unknown]
  - Influenza [Unknown]
  - Microangiopathy [Unknown]
  - Renal failure [Recovering/Resolving]
  - Cough [Unknown]
